FAERS Safety Report 25090580 (Version 5)
Quarter: 2025Q4

REPORT INFORMATION
  Report Type: Report from Study
  Country: CO (occurrence: CO)
  Receive Date: 20250318
  Receipt Date: 20251001
  Transmission Date: 20260118
  Serious: Yes (Other)
  Sender: TAKEDA
  Company Number: CO-TAKEDA-2025TUS028324

PATIENT
  Age: 47 Year
  Sex: Male

DRUGS (7)
  1. ADYNOVATE [Suspect]
     Active Substance: ANTIHEMOPHILIC FACTOR, HUMAN RECOMBINANT
     Indication: Haemorrhage
     Dosage: 4500 INTERNATIONAL UNIT
  2. ADYNOVATE [Suspect]
     Active Substance: ANTIHEMOPHILIC FACTOR, HUMAN RECOMBINANT
     Dosage: 3000 INTERNATIONAL UNIT
  3. ADYNOVATE [Suspect]
     Active Substance: ANTIHEMOPHILIC FACTOR, HUMAN RECOMBINANT
     Dosage: 4500 INTERNATIONAL UNIT
  4. ADYNOVATE [Suspect]
     Active Substance: ANTIHEMOPHILIC FACTOR, HUMAN RECOMBINANT
     Dosage: 2500 INTERNATIONAL UNIT
  5. ADYNOVATE [Suspect]
     Active Substance: ANTIHEMOPHILIC FACTOR, HUMAN RECOMBINANT
     Dosage: 4500 INTERNATIONAL UNIT, QD
     Dates: start: 20250920
  6. ADYNOVATE [Suspect]
     Active Substance: ANTIHEMOPHILIC FACTOR, HUMAN RECOMBINANT
     Dosage: 4500 INTERNATIONAL UNIT, QD
  7. TRANEXAMIC ACID [Concomitant]
     Active Substance: TRANEXAMIC ACID
     Dosage: 1 GRAM
     Dates: start: 20250303, end: 20250306

REACTIONS (8)
  - Post procedural haemorrhage [Recovering/Resolving]
  - Gingival bleeding [Recovered/Resolved]
  - Drug ineffective [Recovered/Resolved]
  - Haemarthrosis [Recovering/Resolving]
  - Haemorrhage [Recovering/Resolving]
  - Fall [Recovering/Resolving]
  - Activated partial thromboplastin time prolonged [Unknown]
  - Weight increased [Unknown]

NARRATIVE: CASE EVENT DATE: 20250920
